FAERS Safety Report 8220105-7 (Version None)
Quarter: 2012Q1

REPORT INFORMATION
  Report Type: 
  Country: None (occurrence: None)
  Receive Date: 20120316
  Receipt Date: 20120307
  Transmission Date: 20120608
  Serious: Yes (Hospitalization, Other)
  Sender: FDA-Public Use
  Company Number: 2011SP040438

PATIENT
  Age: 56 Year
  Sex: Female

DRUGS (8)
  1. PROCRIT [Concomitant]
  2. PEG-INRON [Suspect]
     Indication: HEPATITIS C
     Dates: start: 20080104, end: 20081003
  3. PEG-INRON [Suspect]
     Indication: HEPATITIS C
     Dates: start: 20110817
  4. PEG-INRON [Suspect]
     Indication: HEPATITIS C
     Dates: end: 20091007
  5. RIBAVIRIN [Suspect]
     Indication: HEPATITIS C
     Dates: end: 20091007
  6. RIBAVIRIN [Suspect]
     Indication: HEPATITIS C
     Dates: start: 20080104, end: 20081003
  7. RIBAVIRIN [Suspect]
     Indication: HEPATITIS C
     Dates: start: 20110817
  8. VICTRELIS [Suspect]
     Indication: HEPATITIS C
     Dosage: 800 MG;TID;PO
     Route: 048
     Dates: start: 20110914

REACTIONS (13)
  - DYSPNOEA [None]
  - LETHARGY [None]
  - PRODUCT QUALITY ISSUE [None]
  - WEIGHT DECREASED [None]
  - DYSGEUSIA [None]
  - EPISTAXIS [None]
  - RASH [None]
  - FATIGUE [None]
  - ASTHENIA [None]
  - CAPSULE PHYSICAL ISSUE [None]
  - HEADACHE [None]
  - NAUSEA [None]
  - ANAEMIA [None]
